FAERS Safety Report 4881001-6 (Version None)
Quarter: 2005Q4

REPORT INFORMATION
  Report Type: 
  Country: None (occurrence: None)
  Receive Date: 20051223
  Receipt Date: 20051026
  Transmission Date: 20060501
  Serious: Yes (Hospitalization)
  Sender: FDA-Public Use
  Company Number: 05P-163-0315395-00

PATIENT
  Age: 63 Year
  Sex: Female
  Weight: 106 kg

DRUGS (15)
  1. HUMIRA [Suspect]
     Indication: RHEUMATOID ARTHRITIS
     Dosage: 40 MG, 1 IN 2 WK, SUBCUTANEOUS
     Route: 058
     Dates: start: 20050601
  2. MELOXICAM [Concomitant]
  3. METOPROLOL [Concomitant]
  4. LEXAPRO [Concomitant]
  5. CLONAZEPAM [Concomitant]
  6. FOLIC ACID [Concomitant]
  7. CARBAMAZEPINE [Concomitant]
  8. METHOTREXATE [Concomitant]
  9. OMEPRAZOLE [Concomitant]
  10. OXYCOCET [Concomitant]
  11. FENTANYL [Concomitant]
  12. LIDODERM PATCH [Concomitant]
  13. TIAGABINE HYDROCHLORIDE [Concomitant]
  14. LUNESTA [Concomitant]
  15. CYMBALTA [Concomitant]

REACTIONS (2)
  - BRONCHITIS [None]
  - FATIGUE [None]
